FAERS Safety Report 9469739 (Version 1)
Quarter: 2013Q3

REPORT INFORMATION
  Report Type: Report from Study
  Country: US (occurrence: US)
  Receive Date: 20130822
  Receipt Date: 20130822
  Transmission Date: 20140515
  Serious: Yes (Hospitalization)
  Sender: FDA-Public Use
  Company Number: PHEH2013US017746

PATIENT
  Sex: Female
  Weight: 92.52 kg

DRUGS (13)
  1. ZOMETA [Suspect]
     Dosage: 4 MG/ 5 ML VIAL
  2. ZOMETA [Suspect]
     Dosage: 4 MG/100
  3. LASIX [Concomitant]
     Dosage: 20 MG, UNK
  4. METFORMIN [Concomitant]
     Dosage: 500 MG, UNK
  5. DEXAMETASON [Concomitant]
     Dosage: 0.5/5 ML
  6. FISH OIL [Concomitant]
     Dosage: UNK UKN, UNK
  7. BENICAR HCT [Concomitant]
     Dosage: UNK UKN, UNK, 40-25 MG
  8. VITAMIN B12 [Concomitant]
     Dosage: 1000 CR
  9. MULTIVIT//VITAMINS NOS [Concomitant]
     Dosage: UNK UKN, UNK
  10. CALCIUM + VIT D [Concomitant]
     Dosage: UNK UKN, UNK
  11. MAGENSIUM VITAFIT [Concomitant]
     Dosage: 300 MG, UNK
  12. REVLIMID [Concomitant]
     Dosage: 10 MG, DAILY (FOR 21 DAYS)
     Route: 048
  13. REVLIMID [Concomitant]
     Dosage: 10 MG, DAILY (FOR 28 DAYS)
     Route: 048

REACTIONS (5)
  - Cellulitis [Unknown]
  - Bacterial infection [Unknown]
  - Hypersensitivity [Unknown]
  - Pruritus [Unknown]
  - Local swelling [Unknown]
